FAERS Safety Report 6557258-2 (Version None)
Quarter: 2010Q1

REPORT INFORMATION
  Report Type: 
  Country: None (occurrence: None)
  Receive Date: 20100129
  Receipt Date: 20100119
  Transmission Date: 20100710
  Serious: Yes (Hospitalization)
  Sender: FDA-Public Use
  Company Number: US-BIOGENIDEC-2010BI001930

PATIENT
  Age: 66 Year
  Sex: Female
  Weight: 36 kg

DRUGS (20)
  1. TYSABRI [Suspect]
     Indication: MULTIPLE SCLEROSIS
     Route: 042
     Dates: start: 20090715
  2. AMBIEN CR [Concomitant]
  3. BACLOFEN [Concomitant]
     Route: 048
  4. BOTOX [Concomitant]
     Indication: MUSCLE SPASTICITY
  5. DEPAKOTE ER [Concomitant]
     Route: 048
  6. DULCOLAX [Concomitant]
  7. VITAMIN D [Concomitant]
  8. FOSAMAX [Concomitant]
     Route: 048
  9. FUROSEMIDE [Concomitant]
     Route: 048
  10. GEODON [Concomitant]
     Route: 048
  11. GLYCOLAX [Concomitant]
     Route: 048
  12. LORTAB [Concomitant]
  13. TOPROL-XL [Concomitant]
     Route: 048
  14. POTASSIUM [Concomitant]
  15. RECLAST [Concomitant]
     Dates: start: 20091201
  16. REMIFEMIN [Concomitant]
     Route: 048
  17. SANCTURA [Concomitant]
  18. TIZANIDINE HCL [Concomitant]
  19. XOPENEX [Concomitant]
  20. ZOLOFT [Concomitant]
     Route: 048

REACTIONS (2)
  - NEUROGENIC BOWEL [None]
  - PNEUMONIA [None]
